FAERS Safety Report 9046631 (Version 4)
Quarter: 2015Q2

REPORT INFORMATION
  Report Type: Report from Study
  Country: US (occurrence: US)
  Receive Date: 20130204
  Receipt Date: 20150511
  Transmission Date: 20150821
  Serious: Yes (Hospitalization)
  Sender: FDA-Public Use
  Company Number: US-BIOGENIDEC-2013BI009433

PATIENT
  Sex: Female

DRUGS (2)
  1. AVONEX [Suspect]
     Active Substance: INTERFERON BETA-1A
     Indication: MULTIPLE SCLEROSIS
     Route: 030
     Dates: start: 20010330
  2. AVONEX [Suspect]
     Active Substance: INTERFERON BETA-1A
     Indication: MULTIPLE SCLEROSIS
     Route: 030

REACTIONS (22)
  - Pulmonary congestion [Recovered/Resolved]
  - Back pain [Not Recovered/Not Resolved]
  - Blindness [Not Recovered/Not Resolved]
  - Arthralgia [Recovered/Resolved]
  - Stress [Recovered/Resolved]
  - Myofascial pain syndrome [Not Recovered/Not Resolved]
  - Breast cancer [Not Recovered/Not Resolved]
  - Constipation [Recovered/Resolved]
  - Gastrooesophageal reflux disease [Not Recovered/Not Resolved]
  - Alopecia [Recovered/Resolved]
  - Laser therapy [Not Recovered/Not Resolved]
  - Varicose vein [Recovered/Resolved]
  - Hypertension [Not Recovered/Not Resolved]
  - Depressed mood [Recovered/Resolved]
  - Arthritis [Not Recovered/Not Resolved]
  - Hysterectomy [Not Recovered/Not Resolved]
  - Foot deformity [Not Recovered/Not Resolved]
  - Tooth fracture [Recovered/Resolved]
  - Tooth infection [Recovered/Resolved]
  - Nasal congestion [Recovered/Resolved]
  - Carpal tunnel syndrome [Not Recovered/Not Resolved]
  - Musculoskeletal stiffness [Not Recovered/Not Resolved]

NARRATIVE: CASE EVENT DATE: 2012
